FAERS Safety Report 18863781 (Version 1)
Quarter: 2021Q1

REPORT INFORMATION
  Report Type: Report from Study
  Country: US (occurrence: US)
  Receive Date: 20210208
  Receipt Date: 20210208
  Transmission Date: 20210420
  Serious: Yes (Hospitalization, Other)
  Sender: FDA-Public Use
  Company Number: US-TAKEDA-2020TUS061058

PATIENT
  Sex: Female

DRUGS (8)
  1. TEDUGLUTIDE [Suspect]
     Active Substance: TEDUGLUTIDE
     Dosage: 3.45 MILLIGRAM, QD
     Route: 058
     Dates: start: 202010
  2. TEDUGLUTIDE [Suspect]
     Active Substance: TEDUGLUTIDE
     Indication: MALABSORPTION
     Dosage: 3.45 MILLIGRAM, QD
     Route: 058
     Dates: start: 20201028
  3. TEDUGLUTIDE [Suspect]
     Active Substance: TEDUGLUTIDE
     Indication: MALABSORPTION
     Dosage: 3.45 MILLIGRAM, QD
     Route: 058
     Dates: start: 20201028
  4. TEDUGLUTIDE [Suspect]
     Active Substance: TEDUGLUTIDE
     Indication: MALABSORPTION
     Dosage: 3.45 MILLIGRAM, QD
     Route: 058
     Dates: start: 20201028
  5. TEDUGLUTIDE [Suspect]
     Active Substance: TEDUGLUTIDE
     Dosage: 3.45 MILLIGRAM, QD
     Route: 058
     Dates: start: 202010
  6. TEDUGLUTIDE [Suspect]
     Active Substance: TEDUGLUTIDE
     Indication: MALABSORPTION
     Dosage: 3.45 MILLIGRAM, QD
     Route: 058
     Dates: start: 20201028
  7. TEDUGLUTIDE [Suspect]
     Active Substance: TEDUGLUTIDE
     Dosage: 3.45 MILLIGRAM, QD
     Route: 058
     Dates: start: 202010
  8. TEDUGLUTIDE [Suspect]
     Active Substance: TEDUGLUTIDE
     Dosage: 3.45 MILLIGRAM, QD
     Route: 058
     Dates: start: 202010

REACTIONS (3)
  - Headache [Unknown]
  - Nausea [Unknown]
  - Device related sepsis [Unknown]
